FAERS Safety Report 16845715 (Version 1)
Quarter: 2019Q3

REPORT INFORMATION
  Report Type: Spontaneous
  Country: US (occurrence: US)
  Receive Date: 20190924
  Receipt Date: 20190924
  Transmission Date: 20191005
  Serious: No
  Sender: FDA-Public Use
  Company Number: US-ASSERTIO THERAPEUTICS, INC.-US-2019DEP000365

PATIENT
  Age: 67 Year
  Sex: Female
  Weight: 88.44 kg

DRUGS (10)
  1. DEPLIN [Concomitant]
     Active Substance: LEVOMEFOLATE CALCIUM
     Indication: DEPRESSION
     Dosage: UNK UNK, QD
     Route: 048
  2. POTASSIUM [Concomitant]
     Active Substance: POTASSIUM
     Indication: PRODUCT USED FOR UNKNOWN INDICATION
     Dosage: UNK, QD
     Route: 048
  3. HCTZ [Concomitant]
     Active Substance: HYDROCHLOROTHIAZIDE
     Indication: BLOOD PRESSURE MANAGEMENT
     Dosage: UNK UNK, QD
     Route: 048
     Dates: start: 1999
  4. PRISTIQ EXTENDED-RELEASE [Concomitant]
     Active Substance: DESVENLAFAXINE SUCCINATE
     Indication: DEPRESSION
     Dosage: UNK UNK, QD
     Route: 048
  5. ZONISAMIDE. [Concomitant]
     Active Substance: ZONISAMIDE
     Indication: BACK PAIN
     Dosage: UNK, BID
     Route: 048
  6. AMBIEN [Concomitant]
     Active Substance: ZOLPIDEM TARTRATE
     Indication: PRODUCT USED FOR UNKNOWN INDICATION
     Dosage: UNK, QHS
     Route: 048
     Dates: start: 2019
  7. GRALISE [Suspect]
     Active Substance: GABAPENTIN
     Indication: BACK PAIN
     Dosage: 1800 MG, QD
     Route: 048
     Dates: start: 201809, end: 201901
  8. GRALISE [Suspect]
     Active Substance: GABAPENTIN
     Dosage: UNK
  9. FLEXERIL [Concomitant]
     Active Substance: CYCLOBENZAPRINE HYDROCHLORIDE
     Indication: PRODUCT USED FOR UNKNOWN INDICATION
     Dosage: UNK, TID
     Route: 048
     Dates: start: 2009
  10. AMLODIPINE BENAZEPRIL [Concomitant]
     Active Substance: AMLODIPINE BESYLATE\BENAZEPRIL HYDROCHLORIDE
     Indication: BLOOD PRESSURE MANAGEMENT
     Dosage: UNK UNK, QD
     Route: 048
     Dates: start: 1999

REACTIONS (2)
  - Product use in unapproved indication [Unknown]
  - Adverse event [Recovered/Resolved]

NARRATIVE: CASE EVENT DATE: 201809
